FAERS Safety Report 5412366-4 (Version None)
Quarter: 2007Q3

REPORT INFORMATION
  Report Type: 
  Country: None (occurrence: None)
  Receive Date: 20070713
  Receipt Date: 20070420
  Transmission Date: 20080115
  Serious: No
  Sender: FDA-Public Use
  Company Number: 2007SP001436

PATIENT
  Age: 53 Year
  Sex: Female
  Weight: 68.0396 kg

DRUGS (4)
  1. LUNESTA [Suspect]
     Indication: INSOMNIA
     Dosage: 2 MG;BIW;ORAL
     Route: 048
     Dates: start: 20060101
  2. LISINOPRIL [Concomitant]
  3. NORTRIPTYLINE HCL [Concomitant]
  4. PRILOSEC [Concomitant]

REACTIONS (2)
  - CONSTIPATION [None]
  - DYSPEPSIA [None]
